FAERS Safety Report 7936512-3 (Version None)
Quarter: 2011Q4

REPORT INFORMATION
  Report Type: 
  Country: None (occurrence: None)
  Receive Date: 20111121
  Receipt Date: 20111115
  Transmission Date: 20120403
  Serious: Yes (Other)
  Sender: FDA-Public Use
  Company Number: AUR-APL-2011-04290

PATIENT
  Age: 61 Year
  Sex: Female

DRUGS (12)
  1. MEBEVERINE (MEBEVERINE) [Concomitant]
  2. INDAPAMIDE [Concomitant]
  3. DILTIAZEM [Suspect]
     Indication: PRODUCT USED FOR UNKNOWN INDICATION
     Dosage: (200 MG), ORAL
     Route: 048
     Dates: end: 20101006
  4. BISOPROLOL FUMARATE [Suspect]
     Indication: PRODUCT USED FOR UNKNOWN INDICATION
     Dates: start: 20101001, end: 20101006
  5. SIMVASTATIN [Concomitant]
  6. BENDROFLUMETHIAZIDE (BENDROFLUMETHIAZIDE) [Concomitant]
  7. DANDELION ( TARAXACUM OFFICINALE) [Concomitant]
  8. LOSARTAN POTASSIUM [Concomitant]
  9. DILTIAZEM HYDROCHLORIDE [Suspect]
     Indication: PRODUCT USED FOR UNKNOWN INDICATION
     Dosage: (200 MG, 1 IN 1 D), ORAL
     Route: 048
     Dates: start: 20101006, end: 20101104
  10. RAMIPRIL (ALTACE) [Suspect]
     Indication: BLOOD PRESSURE
     Dosage: (2.5 MG),
     Dates: start: 20101206, end: 20101216
  11. ASPIRIN [Concomitant]
  12. CHAPARRAL DANDELION BLEND (CHAPARRAL DANDELION BLEND) [Concomitant]

REACTIONS (13)
  - VISUAL IMPAIRMENT [None]
  - DIZZINESS [None]
  - DRUG HYPERSENSITIVITY [None]
  - CEREBROVASCULAR ACCIDENT [None]
  - VITREOUS DISORDER [None]
  - VISION BLURRED [None]
  - CEREBRAL HAEMATOMA [None]
  - NAUSEA [None]
  - PRODUCT SUBSTITUTION ISSUE [None]
  - BLOOD PRESSURE INCREASED [None]
  - HYPOAESTHESIA [None]
  - VERTIGO [None]
  - AURA [None]
